FAERS Safety Report 4397954-9 (Version None)
Quarter: 2004Q3

REPORT INFORMATION
  Report Type: 
  Country: None (occurrence: None)
  Receive Date: 20040713
  Receipt Date: 20040629
  Transmission Date: 20050211
  Serious: Yes (Other)
  Sender: FDA-Public Use
  Company Number: 24387

PATIENT
  Age: 64 Year
  Sex: Male
  Weight: 136 kg

DRUGS (7)
  1. ALDARA [Suspect]
     Indication: ACTINIC KERATOSIS
     Dosage: 2 IN 1 WEEK (S), TOPICAL
     Route: 061
     Dates: start: 20040401, end: 20040601
  2. ZOCOR [Suspect]
  3. PAXIL [Suspect]
  4. OXYCONTIN [Concomitant]
  5. PERCOCET [Concomitant]
  6. AVALIDE [Concomitant]
  7. XANAX [Concomitant]

REACTIONS (16)
  - ABDOMINAL DISCOMFORT [None]
  - ABNORMAL DREAMS [None]
  - ALANINE AMINOTRANSFERASE INCREASED [None]
  - ANOREXIA [None]
  - ASPARTATE AMINOTRANSFERASE INCREASED [None]
  - BLOOD CHOLESTEROL INCREASED [None]
  - BLOOD GLUCOSE INCREASED [None]
  - BLOOD TRIGLYCERIDES INCREASED [None]
  - DIABETES MELLITUS [None]
  - FATIGUE [None]
  - GASTRITIS [None]
  - GLYCOSYLATED HAEMOGLOBIN INCREASED [None]
  - HEPATIC STEATOSIS [None]
  - LIPASE INCREASED [None]
  - NAUSEA [None]
  - OVERWEIGHT [None]
